FAERS Safety Report 13490566 (Version 1)
Quarter: 2017Q2

REPORT INFORMATION
  Report Type: Report from Study
  Country: US (occurrence: US)
  Receive Date: 20170427
  Receipt Date: 20170427
  Transmission Date: 20170830
  Serious: Yes (Other)
  Sender: FDA-Public Use
  Company Number: US-BAYER-2017-078500

PATIENT
  Age: 94 Year
  Sex: Male

DRUGS (3)
  1. ASPIRIN. [Suspect]
     Active Substance: ASPIRIN
     Indication: CEREBROVASCULAR ACCIDENT
     Dosage: 81 MG, QD
  2. HEPARIN [Interacting]
     Active Substance: HEPARIN SODIUM
     Dosage: 4000 U, UNK
  3. TISSUE PLASMINOGEN ACTIVATOR [Interacting]
     Active Substance: ALTEPLASE
     Dosage: 10 MG, UNK
     Route: 013

REACTIONS (3)
  - Drug administration error [None]
  - Catheter site haemorrhage [None]
  - Labelled drug-drug interaction medication error [None]
